FAERS Safety Report 21485301 (Version 1)
Quarter: 2022Q4

REPORT INFORMATION
  Report Type: Spontaneous
  Country: CZ (occurrence: CZ)
  Receive Date: 20221020
  Receipt Date: 20221020
  Transmission Date: 20230113
  Serious: No
  Sender: FDA-Public Use
  Company Number: US-Blueprint Medicines Corporation-512

PATIENT
  Age: 18 Year
  Sex: Male

DRUGS (3)
  1. AVAPRITINIB [Suspect]
     Active Substance: AVAPRITINIB
     Indication: Brain stem glioma
     Route: 048
     Dates: start: 20221014
  2. AVAPRITINIB [Suspect]
     Active Substance: AVAPRITINIB
  3. AVAPRITINIB [Suspect]
     Active Substance: AVAPRITINIB

REACTIONS (1)
  - Off label use [Unknown]

NARRATIVE: CASE EVENT DATE: 20221014
